FAERS Safety Report 10976351 (Version 1)
Quarter: 2015Q1

REPORT INFORMATION
  Report Type: Spontaneous
  Country: US (occurrence: None)
  Receive Date: 20150226
  Receipt Date: 20150226
  Transmission Date: 20150721
  Serious: No
  Sender: FDA-Public Use
  Company Number: TPA2010A03755

PATIENT
  Age: 39 Year
  Sex: Male
  Weight: 80.29 kg

DRUGS (4)
  1. ULORIC [Suspect]
     Active Substance: FEBUXOSTAT
     Indication: GOUT
  2. ULORIC [Suspect]
     Active Substance: FEBUXOSTAT
     Indication: RHEUMATOID ARTHRITIS
  3. NAPOXEN (ALL OTHER THERAPEUTIC PRODUCTS) [Concomitant]
  4. ULORIC [Suspect]
     Active Substance: FEBUXOSTAT
     Indication: ARTHRITIS

REACTIONS (6)
  - Weight decreased [None]
  - Haematochezia [None]
  - Liver function test abnormal [None]
  - Nausea [None]
  - Diarrhoea [None]
  - Decreased appetite [None]

NARRATIVE: CASE EVENT DATE: 2010
